FAERS Safety Report 21210857 (Version 1)
Quarter: 2022Q3

REPORT INFORMATION
  Report Type: Other
  Country: GB (occurrence: GB)
  Receive Date: 20220815
  Receipt Date: 20220815
  Transmission Date: 20221027
  Serious: Yes (Hospitalization, Other)
  Sender: FDA-Public Use
  Company Number: GB-DEXPHARM-20221311

PATIENT
  Age: 43 Year
  Sex: Male

DRUGS (9)
  1. DEXAMETHASONE [Suspect]
     Active Substance: DEXAMETHASONE
     Indication: Dermatitis atopic
     Dosage: TOPICAL
  2. RETINOL [Concomitant]
     Active Substance: RETINOL
  3. PREDNISONE [Concomitant]
     Active Substance: PREDNISONE
  4. DOXYCYCLINE [Concomitant]
     Active Substance: DOXYCYCLINE
  5. ATROPINE [Concomitant]
     Active Substance: ATROPINE
  6. MOXIFLOXACIN [Suspect]
     Active Substance: MOXIFLOXACIN
  7. DUPILUMAB [Suspect]
     Active Substance: DUPILUMAB
  8. BARICITINIB [Concomitant]
     Active Substance: BARICITINIB
  9. FLUOROMETHOLONE [Concomitant]
     Active Substance: FLUOROMETHOLONE

REACTIONS (4)
  - Keratoconus [Recovering/Resolving]
  - Cataract subcapsular [Recovering/Resolving]
  - Ulcerative keratitis [Recovering/Resolving]
  - Corneal perforation [Recovering/Resolving]
